FAERS Safety Report 21313683 (Version 1)
Quarter: 2022Q3

REPORT INFORMATION
  Report Type: Other
  Country: US (occurrence: US)
  Receive Date: 20220909
  Receipt Date: 20220909
  Transmission Date: 20221026
  Serious: No
  Sender: FDA-Public Use
  Company Number: US-LEADIANT BIOSCIENCES INC-2021STPI000295

PATIENT
  Sex: Male

DRUGS (1)
  1. MATULANE [Suspect]
     Active Substance: PROCARBAZINE HYDROCHLORIDE
     Indication: Brain neoplasm malignant
     Dosage: 50 MILLIGRAM, TAKE 3 CAPSULES (150 MG TOTAL), AS DIRECTED FOR 14 DAYS ON DAYS 8-21 OF CHEMOTHERAPY C
     Route: 048
     Dates: start: 20210410

REACTIONS (1)
  - Full blood count abnormal [Unknown]
